FAERS Safety Report 17826969 (Version 1)
Quarter: 2020Q2

REPORT INFORMATION
  Report Type: Spontaneous
  Country: US (occurrence: US)
  Receive Date: 20200526
  Receipt Date: 20200526
  Transmission Date: 20200714
  Serious: Yes (Death, Hospitalization, Other)
  Sender: FDA-Public Use
  Company Number: NVSC2020US142476

PATIENT
  Age: 17 Year
  Sex: Male

DRUGS (3)
  1. THIOTEPA. [Suspect]
     Active Substance: THIOTEPA
     Indication: BONE MARROW CONDITIONING REGIMEN
     Dosage: UNK
     Route: 065
  2. CYCLOPHOSPHAMIDE. [Suspect]
     Active Substance: CYCLOPHOSPHAMIDE
     Indication: BONE MARROW CONDITIONING REGIMEN
     Dosage: UNK
     Route: 065
  3. CYCLOSPORINE. [Suspect]
     Active Substance: CYCLOSPORINE
     Indication: PROPHYLAXIS AGAINST GRAFT VERSUS HOST DISEASE
     Dosage: UNK
     Route: 065

REACTIONS (12)
  - Adenovirus infection [Fatal]
  - Graft versus host disease in liver [Unknown]
  - Oesophageal candidiasis [Unknown]
  - BK virus infection [Unknown]
  - Cytomegalovirus infection reactivation [Unknown]
  - Epstein-Barr virus infection reactivation [Unknown]
  - Renal failure [Unknown]
  - Viraemia [Fatal]
  - Bacteraemia [Unknown]
  - Graft versus host disease in skin [Unknown]
  - Mucosal inflammation [Unknown]
  - Staphylococcal bacteraemia [Unknown]
